FAERS Safety Report 9961491 (Version 1)
Quarter: 2014Q1

REPORT INFORMATION
  Report Type: Spontaneous
  Country: FR (occurrence: FR)
  Receive Date: 20140305
  Receipt Date: 20140305
  Transmission Date: 20141002
  Serious: Yes (Hospitalization)
  Sender: FDA-Public Use
  Company Number: PHHY2014FR025276

PATIENT
  Age: 52 Year
  Sex: Female

DRUGS (3)
  1. TAREG [Suspect]
     Dosage: 40 MG, UNK
     Route: 048
     Dates: start: 201206
  2. AMITRIPTYLINE [Suspect]
     Dosage: 10 MG, QD
     Route: 048
     Dates: start: 201308, end: 20140210
  3. DIAZEPAM [Suspect]
     Dosage: 5 MG, UNK
     Route: 048
     Dates: start: 2013

REACTIONS (1)
  - Agranulocytosis [Not Recovered/Not Resolved]
